FAERS Safety Report 5231391-X (Version None)
Quarter: 2007Q1

REPORT INFORMATION
  Report Type: 
  Country: None (occurrence: None)
  Receive Date: 20070202
  Receipt Date: 20060118
  Transmission Date: 20070707
  Serious: Yes (Other)
  Sender: FDA-Public Use
  Company Number: PHO-2007-002

PATIENT
  Sex: Female

DRUGS (1)
  1. PHOTOFRIN [Suspect]
     Indication: BARRETT'S OESOPHAGUS
     Dosage: 2MG/KG; IV
     Route: 042
     Dates: start: 20060101, end: 20060401

REACTIONS (1)
  - PSEUDOPORPHYRIA [None]
